FAERS Safety Report 5534393-9 (Version None)
Quarter: 2007Q4

REPORT INFORMATION
  Report Type: 
  Country: None (occurrence: None)
  Receive Date: 20071205
  Receipt Date: 20071129
  Transmission Date: 20080405
  Serious: Yes (Other)
  Sender: FDA-Public Use
  Company Number: AU-AVENTIS-200719048GDDC

PATIENT
  Age: 78 Year
  Sex: Female

DRUGS (7)
  1. LANTUS [Suspect]
     Route: 058
     Dates: start: 20070426
  2. AUTOPEN INSULIN INJECTION PEN [Suspect]
  3. UNKNOWN DRUG [Concomitant]
  4. LIPITOR [Concomitant]
  5. CLOPIDOGREL [Concomitant]
  6. CARDIPRIN                          /00002701/ [Concomitant]
  7. NEXIUM [Concomitant]

REACTIONS (1)
  - CEREBROVASCULAR ACCIDENT [None]
